FAERS Safety Report 18741243 (Version 3)
Quarter: 2021Q1

REPORT INFORMATION
  Report Type: Spontaneous
  Country: CN (occurrence: CN)
  Receive Date: 20210114
  Receipt Date: 20210202
  Transmission Date: 20210419
  Serious: No
  Sender: FDA-Public Use
  Company Number: CN-TAKEDA-2020TUS060894

PATIENT
  Age: 70 Year
  Sex: Male

DRUGS (2)
  1. FLEXBUMIN [Suspect]
     Active Substance: ALBUMIN HUMAN
     Dosage: 10 GRAM
     Route: 041
     Dates: start: 20201222, end: 20201222
  2. FLEXBUMIN [Suspect]
     Active Substance: ALBUMIN HUMAN
     Indication: PRODUCT USED FOR UNKNOWN INDICATION
     Dosage: UNK
     Route: 042

REACTIONS (5)
  - Device infusion issue [Unknown]
  - Abnormal faeces [Unknown]
  - Diarrhoea [Recovered/Resolved]
  - Vomiting [Recovered/Resolved]
  - Dyspepsia [Unknown]

NARRATIVE: CASE EVENT DATE: 20201222
